FAERS Safety Report 9161896 (Version 1)
Quarter: 2013Q1

REPORT INFORMATION
  Report Type: Spontaneous
  Country: US (occurrence: None)
  Receive Date: 20130221
  Receipt Date: 20130221
  Transmission Date: 20140127
  Serious: Yes (Hospitalization)
  Sender: FDA-Public Use
  Company Number: VAL_01414_2013

PATIENT
  Sex: Male
  Weight: 89 kg

DRUGS (7)
  1. METOPROLOL [Suspect]
     Indication: ATRIAL FIBRILLATION
     Dates: start: 2009, end: 20121201
  2. METOPROLOL [Suspect]
     Indication: CARDIAC FAILURE
     Dates: start: 2009, end: 20121201
  3. METOPROLOL [Suspect]
     Indication: OFF LABEL USE
     Dates: start: 2009, end: 20121201
  4. ALISKIREN VS E NALAPRIL (CODE  NOT BROKEN) [Concomitant]
     Indication: CARDIAC FAILURE
     Dates: start: 20101108, end: 20121209
  5. WARAN [Concomitant]
  6. FURIX [Concomitant]
  7. RAMIPRIL [Concomitant]

REACTIONS (6)
  - Dyspnoea [None]
  - Oedema peripheral [None]
  - Cardiac failure [None]
  - Bradycardia [None]
  - Syncope [None]
  - Pneumonia [None]
